FAERS Safety Report 18710152 (Version 1)
Quarter: 2021Q1

REPORT INFORMATION
  Report Type: Spontaneous
  Country: GB (occurrence: GB)
  Receive Date: 20210107
  Receipt Date: 20210107
  Transmission Date: 20210419
  Serious: Yes (Other)
  Sender: FDA-Public Use
  Company Number: GB-AUROBINDO-AUR-APL-2012-04764

PATIENT
  Age: 65 Year
  Sex: Female

DRUGS (2)
  1. MICONAZOLE. [Suspect]
     Active Substance: MICONAZOLE
     Indication: BODY TINEA
     Dosage: UNK
     Route: 061
  2. TERBINAFINE. [Suspect]
     Active Substance: TERBINAFINE
     Indication: BODY TINEA
     Dosage: UNK
     Route: 048

REACTIONS (15)
  - Rash [Recovering/Resolving]
  - Erythema [Recovering/Resolving]
  - Blood alkaline phosphatase increased [Recovered/Resolved]
  - Skin exfoliation [Recovering/Resolving]
  - Epidermal necrosis [Recovering/Resolving]
  - Transaminases increased [Recovered/Resolved]
  - Stevens-Johnson syndrome [Recovering/Resolving]
  - Toxic epidermal necrolysis [Recovering/Resolving]
  - Mucosal erosion [Recovering/Resolving]
  - Pyrexia [Recovering/Resolving]
  - Subacute cutaneous lupus erythematosus [Recovering/Resolving]
  - Skin lesion [Recovering/Resolving]
  - Conjunctival hyperaemia [Recovering/Resolving]
  - Tachycardia [Recovering/Resolving]
  - Systemic lupus erythematosus [Recovering/Resolving]
